FAERS Safety Report 11843531 (Version 3)
Quarter: 2016Q1

REPORT INFORMATION
  Report Type: Spontaneous
  Country: JP (occurrence: JP)
  Receive Date: 20151217
  Receipt Date: 20160307
  Transmission Date: 20160526
  Serious: Yes (Life-Threatening, Other)
  Sender: FDA-Public Use
  Company Number: JP-ROCHE-1678344

PATIENT
  Age: 67 Year
  Sex: Female
  Weight: 45 kg

DRUGS (5)
  1. DOCETAXEL. [Suspect]
     Active Substance: DOCETAXEL
     Indication: BREAST CANCER
     Route: 065
  2. KYTRIL [Concomitant]
     Active Substance: GRANISETRON HYDROCHLORIDE
     Indication: BREAST CANCER
     Route: 041
     Dates: start: 20150709, end: 20150709
  3. DEXART [Concomitant]
     Active Substance: DEXAMETHASONE SODIUM PHOSPHATE
     Indication: BREAST CANCER
     Route: 041
     Dates: start: 20150709, end: 20150709
  4. HERCEPTIN [Suspect]
     Active Substance: TRASTUZUMAB
     Indication: BREAST CANCER
     Dosage: DOSAGE IS UNCERTAIN.
     Route: 041
     Dates: start: 20150709, end: 20150709
  5. DOCETAXEL. [Suspect]
     Active Substance: DOCETAXEL
     Dosage: AMOUNT OF 1 ONCE ADMINISTRATION: 100MG
     Route: 041
     Dates: start: 20150709, end: 20150709

REACTIONS (13)
  - Hepatic function abnormal [Recovered/Resolved]
  - Nausea [Recovered/Resolved]
  - Pancytopenia [Recovered/Resolved]
  - Sepsis [Recovered/Resolved]
  - Polyuria [Unknown]
  - Acute kidney injury [Recovered/Resolved]
  - Malnutrition [Recovered/Resolved]
  - Pleural effusion [Recovered/Resolved]
  - Dehydration [Recovered/Resolved]
  - Cardiac failure [Recovered/Resolved]
  - Febrile neutropenia [Recovered/Resolved]
  - Pneumonia [Recovered/Resolved]
  - Generalised oedema [Recovered/Resolved]

NARRATIVE: CASE EVENT DATE: 20150715
